FAERS Safety Report 4645114-6 (Version None)
Quarter: 2005Q2

REPORT INFORMATION
  Report Type: 
  Country: None (occurrence: None)
  Receive Date: 20050422
  Receipt Date: 20050413
  Transmission Date: 20051028
  Serious: No
  Sender: FDA-Public Use
  Company Number: 2005UW05814

PATIENT
  Age: 55 Year
  Sex: Male
  Weight: 94 kg

DRUGS (2)
  1. ATACAND HCT [Suspect]
     Indication: HYPERTENSION
     Dosage: 8 MG/12.5 MG
     Dates: start: 20040101
  2. CRESTOR [Concomitant]

REACTIONS (3)
  - PAIN IN EXTREMITY [None]
  - PARAESTHESIA [None]
  - POLYNEUROPATHY [None]
